FAERS Safety Report 6106472-9 (Version None)
Quarter: 2009Q1

REPORT INFORMATION
  Report Type: 
  Country: None (occurrence: None)
  Receive Date: 20090306
  Receipt Date: 20090225
  Transmission Date: 20090719
  Serious: Yes (Hospitalization)
  Sender: FDA-Public Use
  Company Number: US-BAXTER-2009BH003337

PATIENT
  Age: 44 Year
  Sex: Male

DRUGS (2)
  1. HEPARIN SODIUM INJECTION [Suspect]
     Indication: THROMBOSIS PROPHYLAXIS
     Route: 058
     Dates: start: 20030601, end: 20080201
  2. VACCINES [Concomitant]
     Indication: PNEUMONIA
     Route: 065
     Dates: start: 20020101

REACTIONS (9)
  - ANAEMIA [None]
  - BLOOD COPPER INCREASED [None]
  - BLOOD IRON INCREASED [None]
  - CONDITION AGGRAVATED [None]
  - HEPATIC ENZYME INCREASED [None]
  - LUNG INFECTION PSEUDOMONAL [None]
  - PNEUMONIA [None]
  - PNEUMONIA KLEBSIELLA [None]
  - TESTICULAR TORSION [None]
